FAERS Safety Report 6967457-3 (Version None)
Quarter: 2010Q3

REPORT INFORMATION
  Report Type: 
  Country: None (occurrence: None)
  Receive Date: 20100823
  Receipt Date: 20100618
  Transmission Date: 20110219
  Serious: No
  Sender: FDA-Public Use
  Company Number: 014619

PATIENT
  Sex: Female
  Weight: 81.6 kg

DRUGS (3)
  1. CIMZIA [Suspect]
     Indication: CROHN'S DISEASE
     Dosage: (SUBCUTANEOUS)
     Route: 058
     Dates: start: 20100401, end: 20100524
  2. ENTOCORT EC [Concomitant]
  3. ASACOL [Concomitant]

REACTIONS (3)
  - BREAST PAIN [None]
  - BURNING SENSATION [None]
  - PRURITUS [None]
